FAERS Safety Report 4397984-7 (Version None)
Quarter: 2004Q3

REPORT INFORMATION
  Report Type: 
  Country: None (occurrence: None)
  Receive Date: 20040715
  Receipt Date: 20040701
  Transmission Date: 20050211
  Serious: Yes (Death, Life-Threatening, Hospitalization)
  Sender: FDA-Public Use
  Company Number: 200416800GDDC

PATIENT
  Age: 64 Year
  Sex: Male

DRUGS (5)
  1. ANTINEOPLASTIC AND IMMUNOSUPPRESSIVE AGENTS [Concomitant]
     Indication: LUNG SQUAMOUS CELL CARCINOMA STAGE UNSPECIFIED
     Route: 042
     Dates: start: 20030606, end: 20031030
  2. DOCETAXEL [Suspect]
     Indication: LUNG SQUAMOUS CELL CARCINOMA STAGE UNSPECIFIED
     Route: 042
     Dates: start: 20030610, end: 20031027
  3. AMIODARONE HCL [Concomitant]
  4. PANANGIN [Concomitant]
  5. MULTI-VITAMINS [Concomitant]

REACTIONS (8)
  - ATRIAL FLUTTER [None]
  - BLOOD CALCIUM DECREASED [None]
  - BLOOD CREATININE INCREASED [None]
  - BLOOD PH DECREASED [None]
  - CARDIOPULMONARY FAILURE [None]
  - HAEMOGLOBIN DECREASED [None]
  - PAROXYSMAL ARRHYTHMIA [None]
  - PNEUMONIA [None]
